FAERS Safety Report 6761331-3 (Version None)
Quarter: 2010Q2

REPORT INFORMATION
  Report Type: 
  Country: None (occurrence: None)
  Receive Date: 20100608
  Receipt Date: 20100602
  Transmission Date: 20101027
  Serious: Yes (Hospitalization)
  Sender: FDA-Public Use
  Company Number: US-GILEAD-2010-0029560

PATIENT
  Sex: Female

DRUGS (18)
  1. LETAIRIS [Suspect]
     Indication: PULMONARY ARTERIAL HYPERTENSION
     Route: 048
     Dates: start: 20091105
  2. HYDROCHLOROTHIAZIDE [Concomitant]
  3. AVAPRO [Concomitant]
  4. NASONEX [Concomitant]
  5. PATADAY [Concomitant]
  6. SINGULAIR [Concomitant]
  7. SPIRIVA [Concomitant]
  8. SYMBICORT [Concomitant]
  9. XOLAIR [Concomitant]
  10. PREVACID [Concomitant]
  11. ZANTAC [Concomitant]
  12. ZYRTEC-D 12 HOUR [Concomitant]
  13. BONIVA [Concomitant]
  14. FERROUS SULFATE TAB [Concomitant]
  15. FLUCONAZOLE [Concomitant]
  16. METFORMIN HCL [Concomitant]
  17. VITAMIN B-12 [Concomitant]
  18. FOLIC ACID [Concomitant]

REACTIONS (1)
  - BRONCHITIS [None]
